FAERS Safety Report 8335826-5 (Version None)
Quarter: 2012Q2

REPORT INFORMATION
  Report Type: 
  Country: None (occurrence: None)
  Receive Date: 20120501
  Receipt Date: 20120501
  Transmission Date: 20120825
  Serious: Yes (Hospitalization)
  Sender: FDA-Public Use
  Company Number: None

PATIENT
  Age: 71 Year
  Sex: Male
  Weight: 91 kg

DRUGS (3)
  1. OMEPRAZOLE [Concomitant]
  2. ASPIRIN [Suspect]
     Dosage: 81MG X 2 BID PO CHRONIC
     Route: 048
  3. IBUPROFEN TABLETS [Suspect]
     Indication: PAIN
     Dosage: 2 TABS BID PO CHRONIC
     Route: 048

REACTIONS (4)
  - FAECES DISCOLOURED [None]
  - GASTRIC ULCER [None]
  - UPPER GASTROINTESTINAL HAEMORRHAGE [None]
  - HAEMOGLOBIN DECREASED [None]
